FAERS Safety Report 6277319-5 (Version None)
Quarter: 2009Q3

REPORT INFORMATION
  Report Type: 
  Country: None (occurrence: None)
  Receive Date: 20090722
  Receipt Date: 20090402
  Transmission Date: 20100115
  Serious: No
  Sender: FDA-Public Use
  Company Number: US-BRISTOL-MYERS SQUIBB COMPANY-14572358

PATIENT
  Age: 37 Year
  Sex: Female
  Weight: 127 kg

DRUGS (2)
  1. COUMADIN [Suspect]
     Indication: PULMONARY EMBOLISM
     Dosage: INCREASED TO 35MG
     Dates: start: 20090216
  2. LOVENOX [Concomitant]
     Dates: start: 20090216

REACTIONS (1)
  - INTERNATIONAL NORMALISED RATIO DECREASED [None]
